FAERS Safety Report 22126100 (Version 1)
Quarter: 2023Q1

REPORT INFORMATION
  Report Type: Spontaneous
  Country: US (occurrence: US)
  Receive Date: 20230322
  Receipt Date: 20230322
  Transmission Date: 20230418
  Serious: No
  Sender: FDA-Public Use
  Company Number: US-ALLERGAN-2219433US

PATIENT
  Sex: Female
  Weight: 58.059 kg

DRUGS (1)
  1. LATISSE [Suspect]
     Active Substance: BIMATOPROST
     Indication: Growth of eyelashes
     Dosage: UNK
     Dates: start: 202204

REACTIONS (9)
  - Product storage error [Unknown]
  - Inappropriate schedule of product administration [Unknown]
  - Eyelid pain [Unknown]
  - Eyelids pruritus [Recovered/Resolved]
  - Erythema of eyelid [Recovered/Resolved]
  - Eye irritation [Unknown]
  - Eye pain [Recovered/Resolved]
  - Ocular hyperaemia [Recovered/Resolved]
  - Product complaint [Unknown]

NARRATIVE: CASE EVENT DATE: 20220401
